FAERS Safety Report 9747505 (Version 2)
Quarter: 2015Q4

REPORT INFORMATION
  Report Type: Report from Study
  Country: US (occurrence: US)
  Receive Date: 20131212
  Receipt Date: 20151014
  Transmission Date: 20160305
  Serious: Yes (Hospitalization)
  Sender: FDA-Public Use
  Company Number: US-ROCHE-1316281

PATIENT
  Sex: Male

DRUGS (5)
  1. NADOLOL. [Concomitant]
     Active Substance: NADOLOL
     Route: 065
  2. FUROSEMIDE. [Concomitant]
     Active Substance: FUROSEMIDE
     Route: 065
  3. COPEGUS [Suspect]
     Active Substance: RIBAVIRIN
     Indication: CHRONIC HEPATITIS C
     Dosage: 200 MG 2 TAB AT AM AND 3 TAB AT PM
     Route: 048
  4. ALDACTONE (UNITED STATES) [Concomitant]
     Route: 065
  5. PEGASYS [Suspect]
     Active Substance: PEGINTERFERON ALFA-2A
     Indication: CHRONIC HEPATITIS C
     Route: 058

REACTIONS (5)
  - Sepsis [Unknown]
  - Hepatic cirrhosis [Unknown]
  - Disease progression [Unknown]
  - Ascites [Unknown]
  - Urinary tract infection [Unknown]
